FAERS Safety Report 6641776-2 (Version None)
Quarter: 2010Q1

REPORT INFORMATION
  Report Type: 
  Country: None (occurrence: None)
  Receive Date: 20100316
  Receipt Date: 20100303
  Transmission Date: 20100710
  Serious: Yes (Death)
  Sender: FDA-Public Use
  Company Number: 2010S1000141

PATIENT
  Sex: Female

DRUGS (1)
  1. ZIPSOR [Suspect]
     Indication: ARTHRALGIA
     Dosage: 25 MG; Q6H; PO
     Route: 048
     Dates: start: 20091007, end: 20100201

REACTIONS (1)
  - DEATH [None]
